FAERS Safety Report 4431514-6 (Version None)
Quarter: 2004Q3

REPORT INFORMATION
  Report Type: 
  Country: None (occurrence: None)
  Receive Date: 20040726
  Receipt Date: 20040414
  Transmission Date: 20050211
  Serious: No
  Sender: FDA-Public Use
  Company Number: USA040464956

PATIENT
  Age: 60 Year
  Sex: Female

DRUGS (6)
  1. FORTEO [Suspect]
     Dates: start: 20040403
  2. FUROSEMIDE [Concomitant]
  3. POTASSIUM CHLORIDE [Concomitant]
  4. LANOXIN [Concomitant]
  5. COUMADIN [Concomitant]
  6. TYLENOL [Concomitant]

REACTIONS (2)
  - DIZZINESS [None]
  - PAIN IN EXTREMITY [None]
